FAERS Safety Report 12529516 (Version 2)
Quarter: 2016Q3

REPORT INFORMATION
  Report Type: Spontaneous
  Country: JP (occurrence: JP)
  Receive Date: 20160706
  Receipt Date: 20160706
  Transmission Date: 20161109
  Serious: Yes (Other)
  Sender: FDA-Public Use
  Company Number: JP-CIPLA LTD.-2011JP00150

PATIENT

DRUGS (17)
  1. PACLITAXEL. [Suspect]
     Active Substance: PACLITAXEL
     Indication: OVARIAN CANCER
     Dosage: UNK, THREE CYCLES
     Route: 065
  2. ASPIRIN. [Suspect]
     Active Substance: ASPIRIN
     Dosage: 100 MG DAILY, INITIATED 3 DAYS BEFORE CHEMOTHERAPY
     Route: 065
  3. WARFARIN [Interacting]
     Active Substance: WARFARIN
     Indication: DISSEMINATED INTRAVASCULAR COAGULATION
     Dosage: 3.25 MG/ DAY
     Route: 065
  4. WARFARIN [Interacting]
     Active Substance: WARFARIN
     Indication: DEEP VEIN THROMBOSIS
     Dosage: 3 MG/ DAY ON DAY 4
     Route: 065
  5. CARBOPLATIN. [Suspect]
     Active Substance: CARBOPLATIN
     Indication: OVARIAN CANCER
     Dosage: UNK, THREE CYCLES
     Route: 065
  6. HEPARIN [Suspect]
     Active Substance: HEPARIN SODIUM
     Indication: DEEP VEIN THROMBOSIS
  7. GRANISETRON [Suspect]
     Active Substance: GRANISETRON
     Dosage: 3 MG, ON DAYS 1, 8 AND 15
     Route: 065
  8. DEXAMETHASONE. [Suspect]
     Active Substance: DEXAMETHASONE
     Dosage: 6.6 MG, DAYS 2, 3, 8 AND 15
     Route: 065
  9. IRINOTECAN [Suspect]
     Active Substance: IRINOTECAN
     Dosage: UNK, SECOND CYCLE
     Route: 065
  10. CISPLATIN. [Interacting]
     Active Substance: CISPLATIN
     Indication: OVARIAN CANCER
     Dosage: 60 MG/M2, ON DAY 1, EVER 4 WEEKS, TWO CYCLES
     Route: 065
  11. APREPITANT. [Interacting]
     Active Substance: APREPITANT
     Dosage: 125 MG, ON DAY 1
     Route: 065
  12. APREPITANT. [Interacting]
     Active Substance: APREPITANT
     Dosage: 80 MG, ON DAYS 2 AND 3
     Route: 065
  13. HEPARIN [Suspect]
     Active Substance: HEPARIN SODIUM
     Indication: DISSEMINATED INTRAVASCULAR COAGULATION
     Dosage: UNK, CONTINOUS
     Route: 065
  14. IRINOTECAN [Suspect]
     Active Substance: IRINOTECAN
     Indication: OVARIAN CANCER
     Dosage: 60 MG/M2, ON DAYS 1, 8 AND 15, EVERY 4 WEEKS, 2 CYCLES
     Route: 065
  15. DEXAMETHASONE. [Suspect]
     Active Substance: DEXAMETHASONE
     Dosage: 13.2 MG, ON DAY 1
     Route: 065
  16. WARFARIN [Interacting]
     Active Substance: WARFARIN
     Dosage: 3.75 MG/ DAY (INCREASED)
     Route: 065
  17. CISPLATIN. [Interacting]
     Active Substance: CISPLATIN
     Dosage: UNK, SECOND CYCLE
     Route: 065

REACTIONS (5)
  - Therapy non-responder [Unknown]
  - International normalised ratio increased [Unknown]
  - Nausea [Unknown]
  - Decreased appetite [Unknown]
  - Drug interaction [Unknown]
